FAERS Safety Report 9237531 (Version 2)
Quarter: 2013Q2

REPORT INFORMATION
  Report Type: Spontaneous
  Country: US (occurrence: US)
  Receive Date: 20130417
  Receipt Date: 20130514
  Transmission Date: 20140414
  Serious: No
  Sender: FDA-Public Use
  Company Number: US-009507513-1304USA003595

PATIENT
  Sex: Female

DRUGS (6)
  1. PEGINTRON [Suspect]
     Indication: HEPATITIS C
     Dosage: 150 MICROGRAM, QW
     Route: 058
     Dates: start: 201302
  2. REBETOL [Suspect]
     Route: 048
  3. NEURONTIN [Concomitant]
  4. TRAMADOL HYDROCHLORIDE [Concomitant]
  5. BUSPIRONE HYDROCHLORIDE [Concomitant]
  6. SYMBICORT [Concomitant]

REACTIONS (2)
  - Depression [Recovered/Resolved]
  - Product quality issue [Unknown]
